FAERS Safety Report 19941949 (Version 1)
Quarter: 2021Q4

REPORT INFORMATION
  Report Type: Spontaneous
  Country: ES (occurrence: ES)
  Receive Date: 20211012
  Receipt Date: 20211012
  Transmission Date: 20220304
  Serious: Yes (Other)
  Sender: FDA-Public Use
  Company Number: ES-LUPIN PHARMACEUTICALS INC.-2021-19118

PATIENT
  Age: 67 Year
  Sex: Male

DRUGS (6)
  1. CEFTRIAXONE [Suspect]
     Active Substance: CEFTRIAXONE
     Indication: Endocarditis enterococcal
     Dosage: UNK
     Route: 065
  2. CEFTRIAXONE [Suspect]
     Active Substance: CEFTRIAXONE
     Indication: Endocarditis
  3. AMPICILLIN [Suspect]
     Active Substance: AMPICILLIN
     Indication: Endocarditis enterococcal
     Dosage: UNK
     Route: 065
  4. AMPICILLIN [Suspect]
     Active Substance: AMPICILLIN
     Indication: Endocarditis
  5. DAPTOMYCIN [Concomitant]
     Active Substance: DAPTOMYCIN
     Indication: Endocarditis enterococcal
     Dosage: 10 MILLIGRAM/KILOGRAM, QD
     Route: 065
  6. DAPTOMYCIN [Concomitant]
     Active Substance: DAPTOMYCIN
     Indication: Endocarditis

REACTIONS (1)
  - Drug hypersensitivity [Unknown]
